FAERS Safety Report 25970184 (Version 1)
Quarter: 2025Q4

REPORT INFORMATION
  Report Type: Spontaneous
  Country: US (occurrence: None)
  Receive Date: 20251028
  Receipt Date: 20251028
  Transmission Date: 20260117
  Serious: No
  Sender: UCB
  Company Number: US-UCBSA-2025041771

PATIENT

DRUGS (8)
  1. BIMZELX [Suspect]
     Active Substance: BIMEKIZUMAB-BKZX
     Indication: Rheumatoid arthritis
     Dosage: 160 MILLIGRAM, EV 4 WEEKS
  2. ANTACID [Concomitant]
     Active Substance: ALUMINUM HYDROXIDE\CALCIUM CARBONATE\DIMETHICONE\MAGNESIUM HYDROXIDE
     Indication: Hyperchlorhydria
     Dosage: 420 MILLIGRAM
  3. METHYLPREDNISOLONE [Concomitant]
     Active Substance: METHYLPREDNISOLONE
     Indication: Product used for unknown indication
     Dosage: 4 MILLIGRAM
  4. VITAMINS [Concomitant]
     Active Substance: VITAMINS
     Indication: Product used for unknown indication
     Dosage: UNK, ONCE A DAY
  5. POTASSIUM CHLORIDE [Concomitant]
     Active Substance: POTASSIUM CHLORIDE
     Indication: Product used for unknown indication
  6. sinus [Concomitant]
     Indication: Sinus disorder
  7. TALTZ [Concomitant]
     Active Substance: IXEKIZUMAB
     Indication: Product used for unknown indication
  8. HERBALS\TURMERIC [Concomitant]
     Active Substance: HERBALS\TURMERIC
     Indication: Product used for unknown indication

REACTIONS (4)
  - Fungal infection [Unknown]
  - Cellulitis [Unknown]
  - Oral candidiasis [Unknown]
  - Headache [Unknown]
